FAERS Safety Report 12894685 (Version 1)
Quarter: 2016Q4

REPORT INFORMATION
  Report Type: Spontaneous
  Country: FR (occurrence: FR)
  Receive Date: 20161028
  Receipt Date: 20161028
  Transmission Date: 20170207
  Serious: Yes (Hospitalization, Other)
  Sender: FDA-Public Use
  Company Number: FR-PFM-2016-01373

PATIENT
  Age: 54 Year
  Sex: Female

DRUGS (2)
  1. CARBOPLATIN HOSPIRA [Suspect]
     Active Substance: CARBOPLATIN
     Indication: BRONCHIAL CARCINOMA
     Dosage: 830 MG
     Route: 042
     Dates: start: 20160913, end: 20160913
  2. NAVELBINE [Suspect]
     Active Substance: VINORELBINE TARTRATE
     Indication: BRONCHIAL CARCINOMA
     Dosage: 60 MG, CYCLICAL
     Route: 042
     Dates: start: 20160913, end: 20160920

REACTIONS (8)
  - Pericardial effusion [Unknown]
  - Electrocardiogram abnormal [None]
  - Cardiotoxicity [None]
  - Chest pain [Recovered/Resolved]
  - Bone marrow failure [Unknown]
  - Acute coronary syndrome [None]
  - Sepsis [Unknown]
  - Abdominal pain upper [None]

NARRATIVE: CASE EVENT DATE: 20160920
